FAERS Safety Report 8806398 (Version 2)
Quarter: 2013Q1

REPORT INFORMATION
  Report Type: Spontaneous
  Country: US (occurrence: None)
  Receive Date: 20120919
  Receipt Date: 20121217
  Transmission Date: 20140127
  Serious: Yes (Hospitalization)
  Sender: FDA-Public Use
  Company Number: 2012031116

PATIENT
  Age: 47 Year
  Sex: Female
  Weight: 57.61 kg

DRUGS (12)
  1. HIZENTRA [Suspect]
     Indication: IMMUNODEFICIENCY COMMON VARIABLE
     Dosage: 6 G 1X/WEEK, 2-3 SITES OVER 1 HOUR SUBCUTANEOUS
     Dates: start: 20111215, end: 20111215
  2. ACETAMINOPHEN (PARACETAMOL) [Concomitant]
  3. KLONOPIN (CLONAZEPAM) [Concomitant]
  4. TRAMADOL HCL (TRAMADOL HYDROCHLORIDE) [Concomitant]
  5. LAMICTAL (LAMOTRIGINE) [Concomitant]
  6. FISH OIL (FISH OIL) [Concomitant]
  7. PROBIOTIC (LACTOBACILLUS REUTERI) [Concomitant]
  8. FERO-VITA B12 (CYANOCOBALAMIN-TANNIN COMPLEX) [Concomitant]
  9. DIPHENHYDRAMINE (DIPHENHYDRAMINE) [Concomitant]
  10. EPI-PEN (EPINEPHRINE HYDROCHLORIDE) [Concomitant]
  11. BENADRYL (DIPHENHYDRAMINE HYDROCHLORIDE) [Concomitant]
  12. VITAMIN B12 (CYANOCOBALAMIN) [Concomitant]

REACTIONS (11)
  - Dizziness [None]
  - Fatigue [None]
  - Fatigue [None]
  - Hypotension [None]
  - Headache [None]
  - Musculoskeletal stiffness [None]
  - Meningitis [None]
  - Sepsis [None]
  - Hemiplegia [None]
  - Loss of consciousness [None]
  - Infusion related reaction [None]
